FAERS Safety Report 9456434 (Version 3)
Quarter: 2014Q1

REPORT INFORMATION
  Report Type: Spontaneous
  Country: US (occurrence: US)
  Receive Date: 20130813
  Receipt Date: 20140122
  Transmission Date: 20141002
  Serious: Yes (Hospitalization)
  Sender: FDA-Public Use
  Company Number: US-INCYTE CORPORATION-2013IN001785

PATIENT
  Age: 90 Year
  Sex: Male
  Weight: 85.26 kg

DRUGS (3)
  1. JAKAFI [Suspect]
     Indication: MYELOFIBROSIS
     Dosage: 5 MG, QD
     Route: 048
     Dates: start: 20130318
  2. JAKAFI [Suspect]
     Dosage: 5 MG, BID
     Route: 048
     Dates: start: 20130415, end: 20130603
  3. EXJADE [Concomitant]
     Dosage: 1750 MG, QD
     Route: 048
     Dates: start: 20130318, end: 201307

REACTIONS (5)
  - Cardiac disorder [Unknown]
  - Spinal compression fracture [Unknown]
  - Pleural effusion [Unknown]
  - Pneumonia [Unknown]
  - Weight decreased [Unknown]
